FAERS Safety Report 8165730-7 (Version None)
Quarter: 2012Q1

REPORT INFORMATION
  Report Type: 
  Country: None (occurrence: None)
  Receive Date: 20120227
  Receipt Date: 20110124
  Transmission Date: 20120608
  Serious: No
  Sender: FDA-Public Use
  Company Number: US-MYLANLABS-2011S1000629

PATIENT
  Age: 13 Year
  Sex: Male

DRUGS (2)
  1. AMNESTEEM [Suspect]
     Indication: ACNE CYSTIC
     Dates: start: 20101014, end: 20101222
  2. CLARAVIS [Suspect]
     Indication: ACNE CYSTIC
     Dates: start: 20101014, end: 20101222

REACTIONS (1)
  - MOOD ALTERED [None]
